FAERS Safety Report 10724853 (Version 4)
Quarter: 2015Q2

REPORT INFORMATION
  Report Type: Spontaneous
  Country: JP (occurrence: JP)
  Receive Date: 20150120
  Receipt Date: 20150409
  Transmission Date: 20150821
  Serious: Yes (Death)
  Sender: FDA-Public Use
  Company Number: JP-JNJFOC-20150106476

PATIENT
  Age: 84 Year
  Sex: Male
  Weight: 49.89 kg

DRUGS (8)
  1. DIART [Concomitant]
     Active Substance: AZOSEMIDE
     Indication: CARDIAC FAILURE
     Route: 048
     Dates: start: 20140830, end: 20141228
  2. NORMONAL [Concomitant]
     Indication: CARDIAC FAILURE
     Route: 048
     Dates: start: 20140830, end: 20141228
  3. BLOPRESS [Concomitant]
     Active Substance: CANDESARTAN CILEXETIL
     Indication: CARDIAC FAILURE
     Route: 048
     Dates: start: 20140830, end: 20141228
  4. HARNAL [Concomitant]
     Active Substance: TAMSULOSIN HYDROCHLORIDE
     Indication: BENIGN PROSTATIC HYPERPLASIA
     Route: 048
     Dates: start: 20140830, end: 20141228
  5. TAKEPRON [Concomitant]
     Active Substance: LANSOPRAZOLE
     Indication: GASTRIC ULCER
     Route: 048
     Dates: start: 20140830, end: 20141228
  6. FEBUXOSTAT. [Concomitant]
     Active Substance: FEBUXOSTAT
     Indication: HYPERURICAEMIA
     Route: 048
     Dates: start: 20140830, end: 20141228
  7. FEROTYM [Concomitant]
     Active Substance: FERROUS CITRATE\SODIUM
     Indication: IRON DEFICIENCY
     Route: 048
     Dates: start: 20140830, end: 20141228
  8. XARELTO [Suspect]
     Active Substance: RIVAROXABAN
     Indication: THROMBOSIS PROPHYLAXIS
     Dosage: 201 MILLIGRAM
     Route: 048
     Dates: start: 20140829, end: 20141219

REACTIONS (2)
  - Anaemia [Fatal]
  - Acute interstitial pneumonitis [Fatal]

NARRATIVE: CASE EVENT DATE: 20140918
